FAERS Safety Report 12746485 (Version 1)
Quarter: 2016Q3

REPORT INFORMATION
  Report Type: Spontaneous
  Country: US (occurrence: US)
  Receive Date: 20160915
  Receipt Date: 20160915
  Transmission Date: 20161109
  Serious: Yes (Other)
  Sender: FDA-Public Use
  Company Number: US-DRREDDYS-USA/USA/16/0077378

PATIENT
  Age: 40 Year
  Sex: Male

DRUGS (3)
  1. CARBOPLATIN. [Suspect]
     Active Substance: CARBOPLATIN
     Indication: METASTASES TO BONE
     Dosage: THREE CYCLES OF CHEMOTHERAPY
  2. CISPLATIN. [Concomitant]
     Active Substance: CISPLATIN
     Indication: UNDIFFERENTIATED NASOPHARYNGEAL CARCINOMA
  3. GEMCITABINE [Suspect]
     Active Substance: GEMCITABINE\GEMCITABINE HYDROCHLORIDE
     Indication: METASTASES TO BONE
     Dosage: THREE CYCLES OF CHEMOTHERAPY

REACTIONS (1)
  - Thrombocytopenia [Unknown]
